FAERS Safety Report 8881003 (Version 2)
Quarter: 2012Q4

REPORT INFORMATION
  Report Type: 
  Country: CA (occurrence: CA)
  Receive Date: 20121101
  Receipt Date: 20121108
  Transmission Date: 20130627
  Serious: Yes (Other)
  Sender: FDA-Public Use
  Company Number: CA-PFIZER INC-2012268952

PATIENT
  Age: 39 Year
  Sex: Female
  Weight: 58.95 kg

DRUGS (1)
  1. LYRICA [Suspect]
     Indication: BACK PAIN
     Dosage: 75 mg, 2x/day
     Route: 048
     Dates: start: 201009

REACTIONS (1)
  - Palpitations [Recovered/Resolved]
